FAERS Safety Report 15371012 (Version 1)
Quarter: 2018Q3

REPORT INFORMATION
  Report Type: Spontaneous
  Country: AU (occurrence: AU)
  Receive Date: 20180911
  Receipt Date: 20180911
  Transmission Date: 20181010
  Serious: Yes (Hospitalization)
  Sender: FDA-Public Use
  Company Number: AU-GLAXOSMITHKLINE-AU2018GSK159540

PATIENT

DRUGS (1)
  1. TAFENOQUINE [Suspect]
     Active Substance: TAFENOQUINE
     Indication: PRODUCT USED FOR UNKNOWN INDICATION
     Dosage: 250 MG, WE

REACTIONS (23)
  - Nightmare [Unknown]
  - Hyperhidrosis [Unknown]
  - Screaming [Unknown]
  - Mood swings [Unknown]
  - Crying [Unknown]
  - Feeling abnormal [Unknown]
  - Adverse drug reaction [Unknown]
  - Dehydration [Unknown]
  - Migraine [Unknown]
  - Product use issue [Unknown]
  - Insomnia [Unknown]
  - Condition aggravated [Unknown]
  - Stress at work [Unknown]
  - Psychotic disorder [Unknown]
  - Hallucination [Unknown]
  - Miliaria [Unknown]
  - Post-traumatic stress disorder [Unknown]
  - Headache [Unknown]
  - Tinnitus [Unknown]
  - Mental fatigue [Unknown]
  - Rash [Unknown]
  - Tremor [Unknown]
  - Anger [Unknown]
